FAERS Safety Report 22538398 (Version 2)
Quarter: 2023Q4

REPORT INFORMATION
  Report Type: Report from Study
  Country: CA (occurrence: CA)
  Receive Date: 20230609
  Receipt Date: 20231031
  Transmission Date: 20240109
  Serious: Yes (Hospitalization)
  Sender: FDA-Public Use
  Company Number: CA-JNJFOC-20230612358

PATIENT
  Age: 14 Year
  Sex: Male

DRUGS (1)
  1. REMICADE [Suspect]
     Active Substance: INFLIXIMAB
     Indication: Crohn^s disease
     Route: 041

REACTIONS (2)
  - Syncope [Recovered/Resolved]
  - Dehydration [Recovered/Resolved]

NARRATIVE: CASE EVENT DATE: 20230602
